FAERS Safety Report 8943255 (Version 2)
Quarter: 2012Q4

REPORT INFORMATION
  Report Type: Report from Study
  Country: CZ (occurrence: CZ)
  Receive Date: 20121203
  Receipt Date: 20121212
  Transmission Date: 20130627
  Serious: Yes (Death, Hospitalization)
  Sender: FDA-Public Use
  Company Number: CZ-ROCHE-1083912

PATIENT
  Age: 42 Year
  Sex: Male
  Weight: 83 kg

DRUGS (6)
  1. BLINDED ERLOTINIB TABLET [Suspect]
     Indication: NON-SMALL CELL LUNG CANCER
     Dosage: Date of most recent dose of Blinded Erlotinib prior to AE onset: 01 JUL 2012
     Route: 048
     Dates: start: 20120423
  2. BEVACIZUMAB [Suspect]
     Indication: NON-SMALL CELL LUNG CANCER
     Dosage: Last dose prior to events19/Jun/2012 total dose 600 mg
     Route: 042
     Dates: start: 20120120
  3. ZYRTEC [Concomitant]
     Indication: HYPERSENSITIVITY
     Route: 065
     Dates: start: 2000
  4. DHC CONTINUS [Concomitant]
     Indication: CANCER PAIN
     Route: 065
     Dates: start: 20120213
  5. IBALGIN [Concomitant]
     Indication: BACK PAIN
     Route: 065
     Dates: start: 20120423
  6. VENTOLIN [Concomitant]
     Indication: DYSPNOEA
     Route: 065
     Dates: start: 20120423

REACTIONS (2)
  - Pulmonary embolism [Fatal]
  - Non-small cell lung cancer [Not Recovered/Not Resolved]
